FAERS Safety Report 5053558-6 (Version None)
Quarter: 2006Q3

REPORT INFORMATION
  Report Type: 
  Country: None (occurrence: None)
  Receive Date: 20060712
  Receipt Date: 20060623
  Transmission Date: 20061208
  Serious: Yes (Death)
  Sender: FDA-Public Use
  Company Number: GB200603006756

PATIENT
  Sex: 0
  Weight: 3.7 kg

DRUGS (1)
  1. STRATTERA [Suspect]
     Dosage: TRANSPLACENTAL
     Dates: start: 20050708, end: 20050729

REACTIONS (4)
  - ANOXIA [None]
  - DRUG EXPOSURE DURING PREGNANCY [None]
  - LABOUR COMPLICATION [None]
  - STILLBIRTH [None]
